FAERS Safety Report 18771269 (Version 3)
Quarter: 2021Q1

REPORT INFORMATION
  Report Type: Spontaneous
  Country: US (occurrence: US)
  Receive Date: 20210122
  Receipt Date: 20210127
  Transmission Date: 20210419
  Serious: Yes (Death, Hospitalization, Other)
  Sender: FDA-Public Use
  Company Number: US-UNITED THERAPEUTICS-UNT-2021-000806

PATIENT
  Sex: Female

DRUGS (2)
  1. REMODULIN [Suspect]
     Active Substance: TREPROSTINIL
     Indication: PULMONARY ARTERIAL HYPERTENSION
     Dosage: UNK, CONTINUING
     Route: 058
     Dates: start: 202006
  2. REMODULIN [Suspect]
     Active Substance: TREPROSTINIL
     Dosage: 0.0326 ?G/KG, CONTINUING
     Route: 058
     Dates: end: 202101

REACTIONS (5)
  - Acute kidney injury [Fatal]
  - Therapy interrupted [Unknown]
  - Clostridium difficile infection [Fatal]
  - Pulmonary arterial hypertension [Fatal]
  - Urinary tract infection [Fatal]
